FAERS Safety Report 25742645 (Version 1)
Quarter: 2025Q3

REPORT INFORMATION
  Report Type: Spontaneous
  Country: US (occurrence: US)
  Receive Date: 20250830
  Receipt Date: 20250830
  Transmission Date: 20251021
  Serious: No
  Sender: BRISTOL-MYERS SQUIBB COMPANY
  Company Number: US-BRISTOL-MYERS SQUIBB COMPANY-2025-120117

PATIENT
  Age: 72 Year
  Sex: Female

DRUGS (2)
  1. ORENCIA [Suspect]
     Active Substance: ABATACEPT
     Indication: Type 2 diabetes mellitus
     Route: 058
     Dates: start: 202411
  2. ORENCIA [Suspect]
     Active Substance: ABATACEPT
     Indication: Diabetic nephropathy

REACTIONS (2)
  - Malaise [Unknown]
  - Off label use [Unknown]
